FAERS Safety Report 6381298-X (Version None)
Quarter: 2009Q3

REPORT INFORMATION
  Report Type: 
  Country: None (occurrence: None)
  Receive Date: 20090929
  Receipt Date: 20090918
  Transmission Date: 20100115
  Serious: Yes (Hospitalization)
  Sender: FDA-Public Use
  Company Number: FR-PFIZER INC-2009270900

PATIENT
  Age: 81 Year

DRUGS (9)
  1. ALDACTONE [Suspect]
     Indication: HYPERTENSION
     Dosage: 50 MG, 1X/DAY
     Route: 048
     Dates: end: 20090501
  2. HYPERIUM [Suspect]
     Indication: HYPERTENSION
     Dosage: 1 MG, 1X/DAY
     Route: 048
     Dates: end: 20090501
  3. COAPROVEL [Suspect]
     Indication: HYPERTENSION
     Dosage: 1 DF, 1X/DAY
     Route: 048
     Dates: end: 20090501
  4. LASILIX [Concomitant]
     Dosage: 40 MG, UNK
  5. PLAVIX [Concomitant]
     Dosage: 75 MG, UNK
  6. CORDARONE [Concomitant]
     Dosage: 200 MG, UNK
  7. VASTAREL [Concomitant]
     Dosage: 35 MG, UNK
  8. DIAMICRON [Concomitant]
     Dosage: 30 MG, UNK
  9. KALEORID [Concomitant]
     Dosage: 600 MG, UNK

REACTIONS (3)
  - LOSS OF CONSCIOUSNESS [None]
  - MALAISE [None]
  - ORTHOSTATIC HYPOTENSION [None]
